FAERS Safety Report 8512584-2 (Version None)
Quarter: 2012Q3

REPORT INFORMATION
  Report Type: 
  Country: None (occurrence: None)
  Receive Date: 20120716
  Receipt Date: 20120711
  Transmission Date: 20120928
  Serious: Yes (Hospitalization, Other)
  Sender: FDA-Public Use
  Company Number: TR-PFIZER INC-2012167807

PATIENT
  Age: 33 Year
  Sex: Male

DRUGS (4)
  1. METHIMAZOLE [Concomitant]
     Route: 042
  2. CEFAZOLIN [Suspect]
     Indication: UPPER RESPIRATORY TRACT INFECTION
     Route: 042
  3. MORPHINE SULFATE [Suspect]
     Indication: PAIN
     Dosage: 2 MG, SINGLE
     Route: 042
  4. AMOXICILLIN AND CLAVULANATE POTASSIUM [Suspect]
     Indication: UPPER RESPIRATORY TRACT INFECTION
     Route: 048

REACTIONS (3)
  - ANGINA PECTORIS [None]
  - KOUNIS SYNDROME [None]
  - RASH ERYTHEMATOUS [None]
